FAERS Safety Report 8393891-3 (Version None)
Quarter: 2012Q2

REPORT INFORMATION
  Report Type: 
  Country: None (occurrence: None)
  Receive Date: 20120515
  Receipt Date: 20120502
  Transmission Date: 20120825
  Serious: Yes (Other)
  Sender: FDA-Public Use
  Company Number: WAES 1205USA00737

PATIENT
  Age: 72 Year
  Sex: Female

DRUGS (1)
  1. DECADRON [Suspect]
     Indication: MULTIPLE MYELOMA
     Dosage: 40 MG PO, 12 MG/,  20 MG/
     Route: 048
     Dates: start: 20040601

REACTIONS (22)
  - DRUG INEFFECTIVE [None]
  - POLYURIA [None]
  - HAEMOGLOBIN DECREASED [None]
  - MUSCULAR WEAKNESS [None]
  - CONSTIPATION [None]
  - LEUKOPENIA [None]
  - NEOPLASM PROGRESSION [None]
  - OEDEMA PERIPHERAL [None]
  - GASTROINTESTINAL MOTILITY DISORDER [None]
  - HYPERTENSION [None]
  - TOXICITY TO VARIOUS AGENTS [None]
  - DECREASED APPETITE [None]
  - NEUTROPENIA [None]
  - DERMATITIS BULLOUS [None]
  - MICTURITION URGENCY [None]
  - DIARRHOEA [None]
  - VISUAL IMPAIRMENT [None]
  - BONE PAIN [None]
  - SPINAL FRACTURE [None]
  - MUSCLE SPASMS [None]
  - NAUSEA [None]
  - MULTIPLE MYELOMA [None]
